FAERS Safety Report 9056567 (Version 1)
Quarter: 2013Q1

REPORT INFORMATION
  Report Type: Spontaneous
  Country: ES (occurrence: ES)
  Receive Date: 20130204
  Receipt Date: 20130204
  Transmission Date: 20140127
  Serious: Yes (Other)
  Sender: FDA-Public Use
  Company Number: ES-TEVA-383683ISR

PATIENT
  Age: 6 Year
  Sex: Male

DRUGS (2)
  1. METHOTREXATE [Suspect]
     Indication: T-CELL LYMPHOMA STAGE IV
     Dosage: 5 MG/M2
     Route: 041
  2. METHOTREXATE [Suspect]
     Indication: T-CELL LYMPHOMA STAGE IV
     Dosage: 12MG
     Route: 037

REACTIONS (1)
  - Neurotoxicity [Recovering/Resolving]
